FAERS Safety Report 20237324 (Version 1)
Quarter: 2021Q4

REPORT INFORMATION
  Report Type: Spontaneous
  Country: GB (occurrence: GB)
  Receive Date: 20211228
  Receipt Date: 20211228
  Transmission Date: 20220303
  Serious: Yes (Other)
  Sender: FDA-Public Use
  Company Number: None

PATIENT
  Age: 35 Year
  Sex: Female
  Weight: 83.91 kg

DRUGS (1)
  1. CITALOPRAM [Suspect]
     Active Substance: CITALOPRAM HYDROBROMIDE
     Indication: Borderline personality disorder
     Dosage: 20
     Route: 048
     Dates: start: 20190305, end: 20211213

REACTIONS (6)
  - Depression suicidal [Unknown]
  - Depressed mood [Unknown]
  - Weight increased [Recovered/Resolved with Sequelae]
  - Fatigue [Unknown]
  - Emotional disorder [Unknown]
  - Apathy [Unknown]

NARRATIVE: CASE EVENT DATE: 20190919
